FAERS Safety Report 4339782-6 (Version None)
Quarter: 2004Q2

REPORT INFORMATION
  Report Type: 
  Country: None (occurrence: None)
  Receive Date: 20040414
  Receipt Date: 20040414
  Transmission Date: 20050107
  Serious: Yes (Life-Threatening)
  Sender: FDA-Public Use
  Company Number: None

PATIENT
  Age: 18 Year
  Sex: Male
  Weight: 36.1 kg

DRUGS (7)
  1. LISINOPRIL [Suspect]
     Indication: VENTRICULAR DYSFUNCTION
     Dosage: 5 MG QD ORAL
     Route: 048
     Dates: start: 20030519, end: 20040414
  2. PAXIL [Suspect]
     Indication: DEPRESSION
     Dosage: 10 MG QD ORAL
     Route: 048
     Dates: start: 20040411, end: 20040411
  3. ATIVAN [Concomitant]
  4. DEXTROSE 5% [Concomitant]
  5. KCL TAB [Concomitant]
  6. MIRALAX [Concomitant]
  7. ELAVIL [Concomitant]

REACTIONS (5)
  - DEHYDRATION [None]
  - DEPRESSION [None]
  - RESPIRATORY DISTRESS [None]
  - SWOLLEN TONGUE [None]
  - TREATMENT NONCOMPLIANCE [None]
